FAERS Safety Report 8510761-8 (Version None)
Quarter: 2012Q3

REPORT INFORMATION
  Report Type: 
  Country: None (occurrence: None)
  Receive Date: 20120716
  Receipt Date: 20120711
  Transmission Date: 20120928
  Serious: No
  Sender: FDA-Public Use
  Company Number: US-PFIZER INC-2012143028

PATIENT
  Sex: Female
  Weight: 52.154 kg

DRUGS (24)
  1. CHANTIX [Suspect]
     Dosage: UNK
     Route: 048
  2. CHANTIX [Suspect]
     Dosage: 0.5 MG, 2X/DAY
     Route: 048
     Dates: start: 20120101, end: 20120101
  3. DOXEPIN [Concomitant]
     Indication: SLEEP DISORDER
     Dosage: 25 MG, AS NEEDED
  4. ABILIFY [Concomitant]
     Indication: ANXIETY
  5. ABILIFY [Concomitant]
     Indication: PREMENSTRUAL SYNDROME
  6. CHANTIX [Suspect]
     Dosage: 0.5 MG, 1X/DAY
     Route: 048
     Dates: start: 20120423, end: 20120101
  7. DIAZEPAM [Concomitant]
     Indication: MUSCLE SPASMS
  8. CHANTIX [Suspect]
     Dosage: HALF TABLET OF 0.5MG DAILY
     Route: 048
     Dates: start: 20120419, end: 20120401
  9. SARAFEM [Concomitant]
     Indication: DEPRESSION
     Dosage: 40 MG, DAILY
  10. SARAFEM [Concomitant]
     Indication: ANXIETY
  11. ALLERTEC [Concomitant]
     Indication: HYPERSENSITIVITY
     Dosage: 10 MG, DAILY
  12. CHANTIX [Suspect]
     Indication: SMOKING CESSATION THERAPY
     Dosage: 0.5 MG, DAILY
     Route: 048
  13. ABILIFY [Concomitant]
     Indication: DEPRESSION
     Dosage: 10 MG, DAILY
  14. SARAFEM [Concomitant]
     Indication: PREMENSTRUAL SYNDROME
  15. INNOPRAN XL [Concomitant]
     Indication: HYPERTENSION
     Dosage: 80 MG, DAILY
  16. INNOPRAN XL [Concomitant]
     Indication: PALPITATIONS
  17. DIAZEPAM [Concomitant]
     Indication: ANXIETY
  18. DIAZEPAM [Concomitant]
     Indication: FIBROMYALGIA
  19. OMEPRAZOLE [Concomitant]
     Indication: GASTROOESOPHAGEAL REFLUX DISEASE
     Dosage: 20 MG, DAILY
  20. MULTI-VITAMINS [Concomitant]
     Dosage: UNK
  21. SARAFEM [Concomitant]
     Indication: OBSESSIVE-COMPULSIVE DISORDER
  22. MICRONOR [Concomitant]
     Indication: CONTRACEPTION
     Dosage: 0.35 MG, DAILY
  23. ABILIFY [Concomitant]
     Indication: OBSESSIVE-COMPULSIVE DISORDER
  24. DIAZEPAM [Concomitant]
     Indication: INSOMNIA
     Dosage: 10 MG, AS NEEDED

REACTIONS (1)
  - VOMITING [None]
